FAERS Safety Report 6016764-X (Version None)
Quarter: 2008Q4

REPORT INFORMATION
  Report Type: 
  Country: None (occurrence: None)
  Receive Date: 20081222
  Receipt Date: 20081209
  Transmission Date: 20090506
  Serious: Yes (Hospitalization)
  Sender: FDA-Public Use
  Company Number: DE-EISAI MEDIAL RESEARCH-E7273-00021-SPO-DE

PATIENT
  Sex: Male
  Weight: 92 kg

DRUGS (7)
  1. TARGRETIN [Suspect]
     Indication: MYCOSIS FUNGOIDES
     Route: 048
     Dates: start: 20080530, end: 20080613
  2. TARGRETIN [Suspect]
  3. FENOFIBRATE [Concomitant]
     Indication: BLOOD CHOLESTEROL INCREASED
     Route: 065
     Dates: start: 20080524, end: 20080613
  4. MARCUMAR [Concomitant]
     Indication: ARRHYTHMIA
     Dates: start: 19980101
  5. DILTIAZEM [Concomitant]
     Indication: ARRHYTHMIA
     Dates: start: 20010101
  6. LANITOP [Concomitant]
     Indication: ARRHYTHMIA
     Route: 065
     Dates: start: 19980101
  7. PANTOZOL [Concomitant]
     Route: 065
     Dates: end: 20081001

REACTIONS (9)
  - CHOROIDITIS [None]
  - DEPRESSED MOOD [None]
  - DYSURIA [None]
  - FATIGUE [None]
  - HEADACHE [None]
  - HYPERHIDROSIS [None]
  - INSOMNIA [None]
  - INTERNATIONAL NORMALISED RATIO [None]
  - VISUAL IMPAIRMENT [None]
